FAERS Safety Report 11092739 (Version 1)
Quarter: 2015Q2

REPORT INFORMATION
  Report Type: Spontaneous
  Country: US (occurrence: None)
  Receive Date: 20150505
  Receipt Date: 20150505
  Transmission Date: 20150821
  Serious: No
  Sender: FDA-Public Use
  Company Number: None

PATIENT
  Age: 40 Year
  Sex: Female
  Weight: 78.02 kg

DRUGS (8)
  1. SYNTHROID [Concomitant]
     Active Substance: LEVOTHYROXINE SODIUM
  2. NITROFURANTOIN MONO [Suspect]
     Active Substance: NITROFURANTOIN
     Indication: LABORATORY TEST ABNORMAL
     Dosage: 1 PILL, TWICE DAY, TAKEN BY MOUTH
     Route: 048
     Dates: start: 20150502, end: 20150502
  3. CLARITIN-D 12 HOUR [Concomitant]
     Active Substance: LORATADINE\PSEUDOEPHEDRINE SULFATE
  4. NITROFURANTOIN MONO [Suspect]
     Active Substance: NITROFURANTOIN
     Indication: PURULENCE
     Dosage: 1 PILL, TWICE DAY, TAKEN BY MOUTH
     Route: 048
     Dates: start: 20150502, end: 20150502
  5. NITROFURANTOIN MONO [Suspect]
     Active Substance: NITROFURANTOIN
     Indication: URINARY TRACT DISORDER
     Dosage: 1 PILL, TWICE DAY, TAKEN BY MOUTH
     Route: 048
     Dates: start: 20150502, end: 20150502
  6. IMITREX [Concomitant]
     Active Substance: SUMATRIPTAN\SUMATRIPTAN SUCCINATE
  7. TENORMIN [Concomitant]
     Active Substance: ATENOLOL
  8. ZOLOFT [Concomitant]
     Active Substance: SERTRALINE HYDROCHLORIDE

REACTIONS (7)
  - Malaise [None]
  - Chills [None]
  - Vomiting [None]
  - Similar reaction on previous exposure to drug [None]
  - Pain [None]
  - Middle insomnia [None]
  - Pyrexia [None]

NARRATIVE: CASE EVENT DATE: 20150503
